FAERS Safety Report 7401421-5 (Version None)
Quarter: 2011Q2

REPORT INFORMATION
  Report Type: 
  Country: None (occurrence: None)
  Receive Date: 20110407
  Receipt Date: 20110325
  Transmission Date: 20111010
  Serious: Yes (Other)
  Sender: FDA-Public Use
  Company Number: DE-MYLANLABS-2011S1006169

PATIENT
  Sex: Female
  Weight: 2.97 kg

DRUGS (3)
  1. LEVOTHYROXINE SODIUM [Concomitant]
     Indication: AUTOIMMUNE THYROIDITIS
     Route: 064
     Dates: end: 20101107
  2. FOLIC ACID FORTE [Concomitant]
     Indication: AUTOIMMUNE THYROIDITIS
     Route: 064
     Dates: end: 20100712
  3. CITALOPRAM [Suspect]
     Dosage: 20 [MG/D (BIS 10) ]
     Route: 064
     Dates: start: 20100119, end: 20101107

REACTIONS (2)
  - DRUG EXPOSURE DURING PREGNANCY [None]
  - SMALL FOR DATES BABY [None]
